FAERS Safety Report 7249338-3 (Version None)
Quarter: 2011Q1

REPORT INFORMATION
  Report Type: 
  Country: None (occurrence: None)
  Receive Date: 20110128
  Receipt Date: 20101130
  Transmission Date: 20110831
  Serious: Yes (Other)
  Sender: FDA-Public Use
  Company Number: US-BAYER-201032621NA

PATIENT
  Sex: Female
  Weight: 90.703 kg

DRUGS (15)
  1. IMITREX [Concomitant]
     Indication: MIGRAINE
  2. SINGULAIR [Concomitant]
     Indication: ASTHMA
     Dosage: 10 MG, QD
     Route: 048
     Dates: start: 20080601, end: 20081028
  3. PROTONIX [Concomitant]
     Indication: PAIN
     Dosage: 40 MG, QD
  4. SINGULAIR [Concomitant]
     Indication: MULTIPLE ALLERGIES
  5. NAPROXEN [Concomitant]
     Indication: PAIN
     Dosage: 500 MG, BID
     Route: 048
  6. YAZ [Suspect]
     Indication: CONTRACEPTION
     Dosage: 1 U, QD
     Route: 048
     Dates: start: 20071001, end: 20091201
  7. YASMIN [Suspect]
     Indication: CONTRACEPTION
     Dosage: 1 U, QD
     Dates: start: 20050401, end: 20050801
  8. PERCOCET [Concomitant]
     Dosage: UNK
     Dates: end: 20080816
  9. OXYCODONE HCL [Concomitant]
     Indication: PAIN MANAGEMENT
     Dosage: 5 MG, PRN
     Route: 048
  10. HYDROCODONE BITARTRATE AND ACETAMINOPHEN [Concomitant]
     Indication: PAIN MANAGEMENT
     Dosage: UNK UNK, PRN
     Route: 048
     Dates: start: 20080501
  11. MULTI-VITAMIN [Concomitant]
     Dosage: UNK UNK, QD
     Route: 048
  12. KEFLEX [Concomitant]
     Indication: INFECTION
     Dosage: 500 MG, UNK
     Dates: start: 20080625
  13. ONDANSETRON [Concomitant]
     Indication: NAUSEA
     Dosage: 4 MG, PRN
     Route: 048
  14. VALIUM [Concomitant]
  15. ALPRAZOLAM [Concomitant]
     Indication: ANXIETY
     Dosage: 0.5 MG, BID
     Route: 048
     Dates: start: 20080501

REACTIONS (13)
  - PAIN IN EXTREMITY [None]
  - ABDOMINAL PAIN [None]
  - NAUSEA [None]
  - GALLBLADDER POLYP [None]
  - HEPATOMEGALY [None]
  - BILIARY COLIC [None]
  - VOMITING [None]
  - CHOLESTEROSIS [None]
  - CHOLECYSTITIS CHRONIC [None]
  - FAT INTOLERANCE [None]
  - ABDOMINAL PAIN UPPER [None]
  - HEPATIC STEATOSIS [None]
  - DIARRHOEA [None]
